FAERS Safety Report 7419821-6 (Version None)
Quarter: 2011Q2

REPORT INFORMATION
  Report Type: 
  Country: None (occurrence: None)
  Receive Date: 20110413
  Receipt Date: 20110413
  Transmission Date: 20111010
  Serious: Yes (Other)
  Sender: FDA-Public Use
  Company Number: None

PATIENT
  Sex: Female
  Weight: 52.1637 kg

DRUGS (1)
  1. DUREZOL [Suspect]
     Indication: EYE INFLAMMATION
     Dosage: ON 3/2/2011 INSTILL 1 DROP 6X DAILY  ON 3/9/2011 4 X DAILY
     Route: 047
     Dates: start: 20110302, end: 20110313

REACTIONS (2)
  - IMPAIRED DRIVING ABILITY [None]
  - VISION BLURRED [None]
